FAERS Safety Report 8258359-3 (Version None)
Quarter: 2012Q2

REPORT INFORMATION
  Report Type: 
  Country: None (occurrence: None)
  Receive Date: 20120404
  Receipt Date: 20120321
  Transmission Date: 20120825
  Serious: Yes (Other)
  Sender: FDA-Public Use
  Company Number: US-MYLANLABS-2012S1006390

PATIENT
  Sex: Male

DRUGS (23)
  1. LIDOCAINE [Interacting]
     Dosage: 10 MCG/KG/MIN, INCREASED TO 40 MCG/KG/MIN
  2. AMIODARONE HCL [Interacting]
     Indication: ARRHYTHMIA
  3. MILRINONE [Concomitant]
     Dosage: 0.2 MCG/KG/MIN
     Route: 065
  4. VECURONIUM BROMIDE [Concomitant]
     Indication: ANAESTHESIA
     Dosage: 0.1 MG/KG
     Route: 065
  5. LIDOCAINE [Interacting]
     Route: 040
  6. ESMOLOL HCL [Interacting]
     Dosage: 250 MCG MCG/KG/MIN
  7. AMIODARONE HCL [Suspect]
     Indication: TORSADE DE POINTES
  8. AMIODARONE HCL [Interacting]
  9. CALCIUM CARBONATE [Concomitant]
     Dosage: 10 MG/KG/DOSE
     Route: 065
  10. FENTANYL [Concomitant]
     Indication: ANAESTHESIA
     Dosage: 5 MCG/KG
     Route: 065
  11. PHENYTOIN [Interacting]
     Route: 040
  12. ISOPRENALINE HCL [Concomitant]
     Dosage: 0.05 MCG/KG/MIN
     Route: 065
  13. PHENYTOIN [Interacting]
     Indication: ARRHYTHMIA
  14. DOPAMINE HCL [Concomitant]
     Route: 065
  15. LIDOCAINE [Interacting]
     Indication: ARRHYTHMIA
  16. ESMOLOL HCL [Interacting]
     Dosage: 30 MCG/KG/MIN, INCREASED TO 200 MCG/KG/MIN
  17. ESMOLOL HCL [Interacting]
     Dosage: 500 MCG/KG/MIN
  18. AMIODARONE HCL [Interacting]
  19. CALCIUM GLUCONATE [Concomitant]
     Route: 065
  20. LIDOCAINE [Interacting]
     Dosage: 50 MCG/KG/MIN
  21. ESMOLOL HCL [Interacting]
     Indication: ARRHYTHMIA
     Dosage: 66 MCG/KG/MIN INFUSION
  22. MAGNESIUM [Concomitant]
     Indication: TORSADE DE POINTES
     Dosage: 25 MG/KG/DOSE
     Route: 065
  23. POTASSIUM [Concomitant]
     Dosage: 1 MEQ/KG/DOSE
     Route: 065

REACTIONS (2)
  - TOXICITY TO VARIOUS AGENTS [None]
  - DRUG INTERACTION [None]
